FAERS Safety Report 8943084 (Version 2)
Quarter: 2013Q1

REPORT INFORMATION
  Report Type: Spontaneous
  Country: US (occurrence: US)
  Receive Date: 20121204
  Receipt Date: 20130222
  Transmission Date: 20140127
  Serious: Yes (Death)
  Sender: FDA-Public Use
  Company Number: US-PFIZER INC-2012301948

PATIENT
  Age: 57 Year
  Sex: Male

DRUGS (1)
  1. INLYTA [Suspect]
     Indication: METASTATIC RENAL CELL CARCINOMA
     Dosage: 2 MG (2 TABLETS OF 1 MG), 2X/DAY
     Route: 048
     Dates: start: 20120812, end: 20121016

REACTIONS (4)
  - Disease progression [Fatal]
  - Metastatic renal cell carcinoma [Fatal]
  - Diarrhoea [Unknown]
  - Stomatitis [Unknown]
